FAERS Safety Report 26212180 (Version 1)
Quarter: 2025Q4

REPORT INFORMATION
  Report Type: Spontaneous
  Country: US (occurrence: US)
  Receive Date: 20251230
  Receipt Date: 20251230
  Transmission Date: 20260118
  Serious: Yes (Death, Other)
  Sender: AMGEN
  Company Number: US-AMGEN-USASP2025255873

PATIENT

DRUGS (6)
  1. BLINATUMOMAB [Suspect]
     Active Substance: BLINATUMOMAB
     Indication: B precursor type acute leukaemia
     Dosage: 9 MICROGRAM, QD (X 7D )
     Route: 040
  2. BLINATUMOMAB [Suspect]
     Active Substance: BLINATUMOMAB
     Dosage: 28 MICROGRAM, QD (X 21D) 14D BREAK
     Route: 040
  3. BLINATUMOMAB [Suspect]
     Active Substance: BLINATUMOMAB
     Dosage: 28 MICROGRAM, QD (X 28D)
     Route: 040
  4. INOTUZUMAB OZOGAMICIN [Concomitant]
     Active Substance: INOTUZUMAB OZOGAMICIN
     Indication: B precursor type acute leukaemia
     Dosage: 0.8 MILLIGRAM/SQ. METER, DAY (D) 1
     Route: 065
  5. INOTUZUMAB OZOGAMICIN [Concomitant]
     Active Substance: INOTUZUMAB OZOGAMICIN
     Dosage: 0.5 MILLIGRAM/SQ. METER, D8
     Route: 065
  6. INOTUZUMAB OZOGAMICIN [Concomitant]
     Active Substance: INOTUZUMAB OZOGAMICIN
     Dosage: 0.5 MILLIGRAM/SQ. METER, 21D CYCLE
     Route: 040

REACTIONS (7)
  - Death [Fatal]
  - Encephalopathy [Fatal]
  - Plasma cell myeloma recurrent [Fatal]
  - Lung disorder [Fatal]
  - Acute lymphocytic leukaemia recurrent [Unknown]
  - Myelosuppression [Unknown]
  - Toxicity to various agents [Unknown]
